FAERS Safety Report 23226229 (Version 1)
Quarter: 2023Q4

REPORT INFORMATION
  Report Type: Spontaneous
  Country: US (occurrence: US)
  Receive Date: 20231124
  Receipt Date: 20231124
  Transmission Date: 20240110
  Serious: Yes (Other)
  Sender: FDA-Public Use
  Company Number: US-BRISTOL-MYERS SQUIBB COMPANY-2023-166609

PATIENT
  Age: 77 Year
  Sex: Male

DRUGS (2)
  1. FEDRATINIB [Suspect]
     Active Substance: FEDRATINIB
     Indication: Myelofibrosis
  2. IVOSIDENIB [Suspect]
     Active Substance: IVOSIDENIB
     Indication: Myelofibrosis

REACTIONS (1)
  - Febrile neutropenia [Unknown]
